FAERS Safety Report 16897015 (Version 1)
Quarter: 2019Q4

REPORT INFORMATION
  Report Type: Report from Study
  Country: IT (occurrence: IT)
  Receive Date: 20191009
  Receipt Date: 20191009
  Transmission Date: 20200122
  Serious: Yes (Hospitalization)
  Sender: FDA-Public Use
  Company Number: IT-ROCHE-2429873

PATIENT
  Age: 66 Year
  Sex: Male

DRUGS (65)
  1. CLORFENAMINA [CHLORPHENAMINE] [Concomitant]
     Route: 065
     Dates: start: 20161116, end: 20161116
  2. METILPREDNISOLONE [Concomitant]
     Active Substance: METHYLPREDNISOLONE
     Route: 065
     Dates: start: 20161116, end: 20161116
  3. METILPREDNISOLONE [Concomitant]
     Active Substance: METHYLPREDNISOLONE
     Route: 065
     Dates: start: 20160921, end: 20160921
  4. METILPREDNISOLONE [Concomitant]
     Active Substance: METHYLPREDNISOLONE
     Route: 065
     Dates: start: 20160825, end: 20160825
  5. METILPREDNISOLONE [Concomitant]
     Active Substance: METHYLPREDNISOLONE
     Route: 065
     Dates: start: 20160824, end: 20160824
  6. PARACETAMOL [Concomitant]
     Active Substance: ACETAMINOPHEN
     Indication: PREMEDICATION
     Route: 065
     Dates: start: 20160825, end: 20160825
  7. OVIXAN [Concomitant]
     Route: 065
     Dates: start: 20190620
  8. METFORMINA CLORHIDRATO [Concomitant]
     Indication: DIABETES MELLITUS
     Route: 065
     Dates: start: 20190101
  9. ACALABRUTINIB. [Suspect]
     Active Substance: ACALABRUTINIB
     Route: 048
     Dates: start: 20170921, end: 20171213
  10. AMOXICILLIN;CLAVULANIC ACID [Concomitant]
     Active Substance: AMOXICILLIN\CLAVULANIC ACID
     Indication: BRONCHITIS
     Route: 065
     Dates: start: 20170908, end: 20170913
  11. PARACETAMOL [Concomitant]
     Active Substance: ACETAMINOPHEN
     Route: 065
     Dates: start: 20161214, end: 20161214
  12. OBINUTUZUMAB. [Suspect]
     Active Substance: OBINUTUZUMAB
     Indication: CHRONIC LYMPHOCYTIC LEUKAEMIA
     Dosage: OVER A TOTAL OF 6 TREATMENT CYCLES?INFUSION START WAS 11:30 AND STOP TIME WAS 15:55.
     Route: 042
     Dates: start: 20160824, end: 20160824
  13. ACALABRUTINIB. [Suspect]
     Active Substance: ACALABRUTINIB
     Route: 048
     Dates: start: 20160727, end: 20170110
  14. ACALABRUTINIB. [Suspect]
     Active Substance: ACALABRUTINIB
     Route: 048
     Dates: start: 20170405, end: 20170628
  15. ACALABRUTINIB. [Suspect]
     Active Substance: ACALABRUTINIB
     Route: 048
     Dates: start: 20180530, end: 20180821
  16. ACALABRUTINIB. [Suspect]
     Active Substance: ACALABRUTINIB
     Route: 048
     Dates: start: 20181115, end: 20190206
  17. CLORFENAMINA [CHLORPHENAMINE] [Concomitant]
     Route: 065
     Dates: start: 20161020, end: 20161020
  18. METILPREDNISOLONE [Concomitant]
     Active Substance: METHYLPREDNISOLONE
     Indication: PREMEDICATION
     Route: 065
     Dates: start: 20160907, end: 20160907
  19. NADIFLOXACIN [Concomitant]
     Active Substance: NADIFLOXACIN
     Route: 065
     Dates: start: 20190218
  20. PARACETAMOL [Concomitant]
     Active Substance: ACETAMINOPHEN
     Route: 065
     Dates: start: 20160824, end: 20160824
  21. PARACETAMOL [Concomitant]
     Active Substance: ACETAMINOPHEN
     Dosage: AS NEEDED
     Route: 065
     Dates: start: 20190928
  22. ACALABRUTINIB. [Suspect]
     Active Substance: ACALABRUTINIB
     Route: 048
     Dates: start: 20190724, end: 20190915
  23. ALLOPURINOLO [Concomitant]
     Active Substance: ALLOPURINOL
     Route: 065
     Dates: start: 20160727, end: 20180214
  24. CLORFENAMINA [CHLORPHENAMINE] [Concomitant]
     Route: 065
     Dates: start: 20160907, end: 20160907
  25. CLORFENAMINA [CHLORPHENAMINE] [Concomitant]
     Route: 065
     Dates: start: 20170111, end: 20170111
  26. METILPREDNISOLONE [Concomitant]
     Active Substance: METHYLPREDNISOLONE
     Route: 065
     Dates: start: 20161020, end: 20161020
  27. METILPREDNISOLONE [Concomitant]
     Active Substance: METHYLPREDNISOLONE
     Route: 065
     Dates: start: 20170111, end: 20170111
  28. PARACETAMOL [Concomitant]
     Active Substance: ACETAMINOPHEN
     Route: 065
     Dates: start: 20161020, end: 20161020
  29. PARACETAMOL [Concomitant]
     Active Substance: ACETAMINOPHEN
     Route: 065
     Dates: start: 20161116, end: 20161116
  30. CLORFENAMINA [CHLORPHENAMINE] [Concomitant]
     Indication: PREMEDICATION
     Route: 065
     Dates: start: 20160825, end: 20160825
  31. ISONIAZIDE [Concomitant]
     Active Substance: ISONIAZID
     Indication: HYPERTENSION
     Route: 065
     Dates: start: 20160825
  32. KETOROLAC [Concomitant]
     Active Substance: KETOROLAC TROMETHAMINE
     Route: 065
     Dates: start: 20160824, end: 20160824
  33. CALCIUM CARBONATE. [Concomitant]
     Active Substance: CALCIUM CARBONATE
     Indication: HYPOCALCAEMIA
     Route: 065
     Dates: start: 20190928
  34. GENTAMICINA [GENTAMICIN] [Concomitant]
     Route: 065
     Dates: start: 20170908, end: 20170911
  35. ALLOPURINOLO [Concomitant]
     Active Substance: ALLOPURINOL
     Route: 065
     Dates: start: 20181115
  36. CLORFENAMINA [CHLORPHENAMINE] [Concomitant]
     Indication: PREMEDICATION
     Dosage: ONE TIME ONLY
     Route: 065
     Dates: start: 20160831, end: 20160831
  37. CLORFENAMINA [CHLORPHENAMINE] [Concomitant]
     Route: 065
     Dates: start: 20160921, end: 20160921
  38. BISOPROLOLO [Concomitant]
     Active Substance: BISOPROLOL FUMARATE
     Route: 065
     Dates: start: 20161019
  39. METILPREDNISOLONE [Concomitant]
     Active Substance: METHYLPREDNISOLONE
     Route: 065
     Dates: start: 20160831, end: 20160831
  40. ACALABRUTINIB. [Suspect]
     Active Substance: ACALABRUTINIB
     Route: 048
     Dates: start: 20171214, end: 20180304
  41. CLORFENAMINA [CHLORPHENAMINE] [Concomitant]
     Route: 065
     Dates: start: 20161214, end: 20161214
  42. CLORFENAMINA [CHLORPHENAMINE] [Concomitant]
     Route: 065
     Dates: start: 20160824, end: 20160824
  43. TITANIUM DIOXIDE. [Concomitant]
     Active Substance: TITANIUM DIOXIDE
     Dosage: AS NEEDED
     Route: 065
     Dates: start: 20180530
  44. METILPREDNISOLONE [Concomitant]
     Active Substance: METHYLPREDNISOLONE
     Route: 065
     Dates: start: 20161214, end: 20161214
  45. EMPAGLIFLOZIN [Concomitant]
     Active Substance: EMPAGLIFLOZIN
     Indication: DIABETES MELLITUS
     Route: 065
     Dates: start: 20190111
  46. PARACETAMOL [Concomitant]
     Active Substance: ACETAMINOPHEN
     Route: 065
     Dates: start: 20160831, end: 20160831
  47. PARACETAMOL [Concomitant]
     Active Substance: ACETAMINOPHEN
     Route: 065
     Dates: start: 20160921, end: 20160921
  48. ACETYLSALICYLIC ACID [Concomitant]
     Active Substance: ASPIRIN
     Indication: ACUTE MYOCARDIAL INFARCTION
     Route: 065
     Dates: start: 2003
  49. OBINUTUZUMAB. [Suspect]
     Active Substance: OBINUTUZUMAB
     Dosage: INFUSION START WAS 12:00 AND STOP TIME WAS 15:30.
     Route: 042
     Dates: start: 20170111, end: 20170111
  50. ACALABRUTINIB. [Suspect]
     Active Substance: ACALABRUTINIB
     Indication: CHRONIC LYMPHOCYTIC LEUKAEMIA
     Route: 048
     Dates: start: 20170111, end: 20170404
  51. ACALABRUTINIB. [Suspect]
     Active Substance: ACALABRUTINIB
     Route: 048
     Dates: start: 20170629, end: 20170920
  52. ACALABRUTINIB. [Suspect]
     Active Substance: ACALABRUTINIB
     Route: 048
     Dates: start: 20180822, end: 20181114
  53. ACALABRUTINIB. [Suspect]
     Active Substance: ACALABRUTINIB
     Route: 048
     Dates: start: 20190207, end: 20190501
  54. ACALABRUTINIB. [Suspect]
     Active Substance: ACALABRUTINIB
     Route: 048
     Dates: start: 20190502, end: 20190723
  55. AMOXICILLIN;CLAVULANIC ACID [Concomitant]
     Active Substance: AMOXICILLIN\CLAVULANIC ACID
     Route: 065
     Dates: start: 20190114, end: 20190121
  56. NADIFLOXACIN [Concomitant]
     Active Substance: NADIFLOXACIN
     Indication: NASAL CYST
     Route: 065
     Dates: start: 20181127, end: 20181210
  57. PARACETAMOL [Concomitant]
     Active Substance: ACETAMINOPHEN
     Route: 065
     Dates: start: 20170111, end: 20170111
  58. METFORMINA [METFORMIN] [Concomitant]
     Active Substance: METFORMIN HYDROCHLORIDE
     Indication: DIABETES MELLITUS
     Route: 065
     Dates: start: 2003, end: 20190110
  59. CALCITRIOL. [Concomitant]
     Active Substance: CALCITRIOL
     Indication: HYPOCALCAEMIA
     Route: 065
     Dates: start: 20190928
  60. SOTALOLO [Concomitant]
     Route: 065
     Dates: start: 2011, end: 20160922
  61. ACALABRUTINIB. [Suspect]
     Active Substance: ACALABRUTINIB
     Route: 048
     Dates: start: 20180305, end: 20180529
  62. CLORFENAMINA [CHLORPHENAMINE] [Concomitant]
     Route: 065
     Dates: start: 20160825, end: 20160825
  63. PARACETAMOL [Concomitant]
     Active Substance: ACETAMINOPHEN
     Indication: PAIN
     Route: 065
     Dates: start: 20160907, end: 20160907
  64. OVIXAN [Concomitant]
     Route: 065
     Dates: start: 20180530, end: 20190620
  65. ATORVASTATIN [Concomitant]
     Active Substance: ATORVASTATIN
     Indication: DYSLIPIDAEMIA
     Route: 065
     Dates: start: 1990

REACTIONS (1)
  - Thyroid cancer [Recovered/Resolved]

NARRATIVE: CASE EVENT DATE: 20190924
